FAERS Safety Report 9372557 (Version 1)
Quarter: 2013Q2

REPORT INFORMATION
  Report Type: Report from Study
  Country: US (occurrence: US)
  Receive Date: 20130627
  Receipt Date: 20130627
  Transmission Date: 20140414
  Serious: Yes (Life-Threatening, Other)
  Sender: FDA-Public Use
  Company Number: US-MYLANLABS-2013S1001042

PATIENT
  Age: 45 Year
  Sex: Male

DRUGS (13)
  1. CLOZAPINE TABLETS [Suspect]
     Route: 048
     Dates: start: 2008, end: 20130108
  2. VICTRELIS [Concomitant]
     Indication: HEPATITIS C
     Route: 048
     Dates: start: 20121213
  3. PEGASYS [Concomitant]
     Indication: HEPATITIS C
     Dosage: INJECTION
     Dates: start: 20121213
  4. RIBAVIRIN [Concomitant]
     Indication: HEPATITIS C
     Route: 048
     Dates: start: 20121213
  5. PROCRIT [Concomitant]
     Indication: ANAEMIA
     Dates: start: 20121219
  6. NORVASC [Concomitant]
     Indication: HYPERTENSION
     Route: 048
  7. NEXIUM [Concomitant]
     Indication: GASTROOESOPHAGEAL REFLUX DISEASE
     Route: 048
  8. PLAVIX [Concomitant]
     Route: 048
  9. COGENTIN [Concomitant]
  10. TOPAMAX [Concomitant]
  11. VITAMIN B12 [Concomitant]
  12. RISPERDAL CONSTA [Concomitant]
     Dosage: INJECTION
  13. PAXIL /00500401/ [Concomitant]

REACTIONS (3)
  - Agranulocytosis [Recovered/Resolved]
  - Granulocytopenia [Not Recovered/Not Resolved]
  - Leukopenia [Not Recovered/Not Resolved]
